FAERS Safety Report 8264889-0 (Version None)
Quarter: 2012Q2

REPORT INFORMATION
  Report Type: 
  Country: None (occurrence: None)
  Receive Date: 20120406
  Receipt Date: 20120326
  Transmission Date: 20120825
  Serious: Yes (Other)
  Sender: FDA-Public Use
  Company Number: US-SANOFI-AVENTIS-2012SA021016

PATIENT
  Sex: Female

DRUGS (1)
  1. AMBIEN [Suspect]

REACTIONS (1)
  - LOSS OF CONSCIOUSNESS [None]
